FAERS Safety Report 8977024 (Version 1)
Quarter: 2012Q4

REPORT INFORMATION
  Report Type: 
  Country: US (occurrence: US)
  Receive Date: 20121220
  Receipt Date: 20121220
  Transmission Date: 20130627
  Serious: Yes (Other)
  Sender: FDA-Public Use
  Company Number: US-ELI_LILLY_AND_COMPANY-US201212004387

PATIENT
  Age: 61 Year
  Sex: Male

DRUGS (7)
  1. AXIRON [Suspect]
     Dosage: UNK, unknown
     Route: 065
     Dates: start: 20121205, end: 20121207
  2. AXIRON [Suspect]
     Dosage: UNK, unknown
     Route: 065
     Dates: start: 20121210
  3. CYMBALTA [Suspect]
     Indication: DEPRESSION
     Dosage: UNK, unknown
     Route: 065
  4. BOTOX [Concomitant]
     Dosage: UNK, unknown
     Route: 065
  5. METHADONE [Concomitant]
     Dosage: UNK, unknown
     Route: 065
  6. HYDROCODONE [Concomitant]
     Dosage: UNK, unknown
     Route: 065
  7. VICODIN [Concomitant]
     Dosage: UNK, unknown
     Route: 065

REACTIONS (7)
  - Loss of consciousness [Unknown]
  - Weight increased [Unknown]
  - Blood pressure increased [Unknown]
  - Venous insufficiency [Unknown]
  - Blood testosterone decreased [Unknown]
  - Joint swelling [Unknown]
  - Intentional drug misuse [Unknown]
